FAERS Safety Report 8630401 (Version 3)
Quarter: 2014Q2

REPORT INFORMATION
  Report Type: Spontaneous
  Country: US (occurrence: US)
  Receive Date: 20120622
  Receipt Date: 20140414
  Transmission Date: 20141212
  Serious: Yes (Hospitalization, Disabling, Other)
  Sender: FDA-Public Use
  Company Number: US-ASTRAZENECA-2012SE34462

PATIENT
  Age: 40 Year
  Sex: Female
  Weight: 100.7 kg

DRUGS (9)
  1. NEXIUM [Suspect]
     Indication: GASTROOESOPHAGEAL REFLUX DISEASE
     Route: 048
     Dates: start: 2005, end: 2010
  2. NEXIUM [Suspect]
     Indication: GASTROOESOPHAGEAL REFLUX DISEASE
     Route: 048
     Dates: start: 20100511
  3. PRILOSEC [Suspect]
     Indication: GASTROOESOPHAGEAL REFLUX DISEASE
     Route: 048
  4. PEPCID [Concomitant]
     Dosage: TWICE A DAY
     Dates: start: 2004
  5. ZANTAC [Concomitant]
     Dosage: THREE TIMES A DAY
     Dates: start: 2004
  6. ROLAIDS [Concomitant]
     Dosage: A PACK A DAY
     Dates: start: 2008
  7. SPRONOLACTONE [Concomitant]
     Indication: BLOOD PRESSURE
  8. TRAZADONE [Concomitant]
     Indication: DEPRESSION
  9. LEVOCETIRZINECHO [Concomitant]
     Indication: HYPERSENSITIVITY

REACTIONS (17)
  - Uterine disorder [Unknown]
  - Diabetic neuropathy [Unknown]
  - Depression [Unknown]
  - Osteoporosis [Unknown]
  - Spinal fracture [Unknown]
  - Multiple fractures [Unknown]
  - Bone disorder [Unknown]
  - Bone pain [Unknown]
  - Diabetes mellitus [Unknown]
  - Arthritis [Unknown]
  - Osteoarthritis [Unknown]
  - Type 1 diabetes mellitus [Unknown]
  - Foot fracture [Unknown]
  - Limb injury [Unknown]
  - Intervertebral disc degeneration [Unknown]
  - Intervertebral disc protrusion [Unknown]
  - Arthralgia [Unknown]
